FAERS Safety Report 17599419 (Version 2)
Quarter: 2020Q2

REPORT INFORMATION
  Report Type: Spontaneous
  Country: US (occurrence: US)
  Receive Date: 20200330
  Receipt Date: 20200501
  Transmission Date: 20200713
  Serious: No
  Sender: FDA-Public Use
  Company Number: US-VERTEX PHARMACEUTICALS-2020-006545

PATIENT
  Age: 12 Year
  Sex: Male

DRUGS (14)
  1. AZTREONAM LYSINE [Suspect]
     Active Substance: AZTREONAM LYSINE
     Indication: CYSTIC FIBROSIS
     Dosage: 75 MG, TID
     Dates: start: 20181213
  2. CIPROFLOXACIN. [Concomitant]
     Active Substance: CIPROFLOXACIN
  3. PULMOZYME [Concomitant]
     Active Substance: DORNASE ALFA
  4. NYSTATIN. [Concomitant]
     Active Substance: NYSTATIN
  5. RISPERIDONE. [Concomitant]
     Active Substance: RISPERIDONE
  6. ALBUTEROL [SALBUTAMOL] [Concomitant]
     Active Substance: ALBUTEROL
  7. ZANTAC [Concomitant]
     Active Substance: RANITIDINE HYDROCHLORIDE
  8. FOCALIN [Concomitant]
     Active Substance: DEXMETHYLPHENIDATE HYDROCHLORIDE
  9. INTUNIV [Concomitant]
     Active Substance: GUANFACINE HYDROCHLORIDE
  10. PREVACID [Concomitant]
     Active Substance: LANSOPRAZOLE
  11. ALTERRA [Concomitant]
  12. SYNAGIS [Concomitant]
     Active Substance: PALIVIZUMAB
  13. TRIKAFTA [Suspect]
     Active Substance: ELEXACAFTOR\IVACAFTOR\TEZACAFTOR
     Indication: CYSTIC FIBROSIS
     Dosage: 2 TAB AM , 1 TAB PM
     Route: 048
     Dates: start: 20191231
  14. CREON 5 [Concomitant]

REACTIONS (3)
  - Chest discomfort [Recovered/Resolved]
  - Insomnia [Not Recovered/Not Resolved]
  - Productive cough [Recovered/Resolved]

NARRATIVE: CASE EVENT DATE: 201912
